FAERS Safety Report 24641212 (Version 1)
Quarter: 2024Q4

REPORT INFORMATION
  Report Type: Spontaneous
  Country: CH (occurrence: CH)
  Receive Date: 20241120
  Receipt Date: 20241120
  Transmission Date: 20250115
  Serious: Yes (Other)
  Sender: CHEPLAPHARM
  Company Number: None

PATIENT
  Age: 82 Year
  Sex: Female

DRUGS (6)
  1. CLONAZEPAM [Suspect]
     Active Substance: CLONAZEPAM
     Indication: Insomnia
     Dosage: DAILY DOSE: 0.5 MILLIGRAM
     Route: 048
     Dates: start: 20230413, end: 20240820
  2. ASPIRIN [Concomitant]
     Active Substance: ASPIRIN
     Dosage: DAILY DOSE: 100 MILLIGRAM
     Route: 048
  3. JANUMET XR [Concomitant]
     Active Substance: METFORMIN HYDROCHLORIDE\SITAGLIPTIN PHOSPHATE
     Dosage: 1 DF = 100/1000 MG?DAILY DOSE: 1 DOSAGE FORM
     Route: 048
  4. PANTOZOL [Concomitant]
     Active Substance: PANTOPRAZOLE SODIUM
     Dosage: DAILY DOSE: 20 MILLIGRAM
     Route: 048
  5. LATANOPROST [Concomitant]
     Active Substance: LATANOPROST
     Dosage: 3 DROPS IN THE RIGHT EYE?DAILY DOSE: 3 DOSAGE FORM
     Route: 047
  6. TAFLUPROST [Concomitant]
     Active Substance: TAFLUPROST
     Dosage: 1 DROP IN THE LEFT EYE?DAILY DOSE: 1 DOSAGE FORM
     Route: 047

REACTIONS (4)
  - Dystonia [Recovered/Resolved]
  - Essential tremor [Recovered/Resolved]
  - Paradoxical drug reaction [Unknown]
  - Off label use [Recovered/Resolved]

NARRATIVE: CASE EVENT DATE: 20230413
